FAERS Safety Report 8394474-1 (Version None)
Quarter: 2012Q2

REPORT INFORMATION
  Report Type: 
  Country: None (occurrence: None)
  Receive Date: 20120530
  Receipt Date: 20090723
  Transmission Date: 20120825
  Serious: Yes (Hospitalization, Other)
  Sender: FDA-Public Use
  Company Number: US-PFIZER INC-2009201899

PATIENT
  Sex: Female
  Weight: 54.422 kg

DRUGS (3)
  1. CHANTIX [Suspect]
     Indication: SMOKING CESSATION THERAPY
     Dosage: 1 MG, 2X/DAY
     Dates: start: 20090411
  2. TEMAZEPAM [Concomitant]
     Dosage: UNK
  3. IBUPROFEN [Suspect]
     Indication: ARTHRITIS
     Dosage: 800 MG, 2X/DAY
     Dates: end: 20090419

REACTIONS (39)
  - NERVOUSNESS [None]
  - ABDOMINAL PAIN UPPER [None]
  - FLUSHING [None]
  - CONSTIPATION [None]
  - WEIGHT INCREASED [None]
  - ABNORMAL BEHAVIOUR [None]
  - COUGH [None]
  - AMNESIA [None]
  - FEAR [None]
  - RETCHING [None]
  - DRY EYE [None]
  - FLATULENCE [None]
  - WEIGHT DECREASED [None]
  - ASTHENIA [None]
  - DRUG WITHDRAWAL SYNDROME [None]
  - GENERALISED ERYTHEMA [None]
  - OEDEMA [None]
  - MULTIPLE ALLERGIES [None]
  - VISUAL ACUITY REDUCED [None]
  - DECREASED APPETITE [None]
  - DRUG INTERACTION [None]
  - NAUSEA [None]
  - DYSPHEMIA [None]
  - EMOTIONAL DISORDER [None]
  - FATIGUE [None]
  - POLLAKIURIA [None]
  - CRYING [None]
  - ARTHRALGIA [None]
  - EYE DISORDER [None]
  - BALANCE DISORDER [None]
  - JOINT SWELLING [None]
  - DEPRESSION [None]
  - MANIA [None]
  - EPISTAXIS [None]
  - POLYDIPSIA [None]
  - HEADACHE [None]
  - FOOD CRAVING [None]
  - PARAESTHESIA [None]
  - VOMITING [None]
